FAERS Safety Report 17346458 (Version 1)
Quarter: 2020Q1

REPORT INFORMATION
  Report Type: Spontaneous
  Country: US (occurrence: US)
  Receive Date: 20200130
  Receipt Date: 20200130
  Transmission Date: 20200409
  Serious: Yes (Death, Hospitalization)
  Sender: FDA-Public Use
  Company Number: US-ZYDUS-046756

PATIENT
  Age: 32 Year
  Sex: Male

DRUGS (1)
  1. BUPROPION/BUPROPION HYDROCHLORIDE [Suspect]
     Active Substance: BUPROPION HYDROCHLORIDE
     Indication: SUICIDE ATTEMPT
     Route: 065

REACTIONS (11)
  - Hypotension [Unknown]
  - Metabolic acidosis [Unknown]
  - Electrocardiogram QRS complex prolonged [Unknown]
  - Toxicity to various agents [Fatal]
  - Generalised tonic-clonic seizure [Unknown]
  - Completed suicide [Fatal]
  - Somnolence [Unknown]
  - Acute kidney injury [Unknown]
  - Electrocardiogram QT interval [Unknown]
  - Congestive cardiomyopathy [Unknown]
  - Cardiogenic shock [Fatal]
